FAERS Safety Report 5160353-6 (Version None)
Quarter: 2006Q4

REPORT INFORMATION
  Report Type: 
  Country: None (occurrence: None)
  Receive Date: 20061120
  Receipt Date: 20061113
  Transmission Date: 20070319
  Serious: Yes (Death)
  Sender: FDA-Public Use
  Company Number: GXKR2006US07289

PATIENT
  Age: 20 Year
  Sex: Male

DRUGS (3)
  1. HALOPERIDOL [Suspect]
     Dosage: ORAL
     Route: 048
  2. NORTRIPTYLINE HCL [Suspect]
     Dosage: 100 DF, ORAL
     Route: 048
  3. ACETYLSALICYLIC ACID SRT [Suspect]
     Dosage: 30 DF, ORAL
     Route: 048

REACTIONS (4)
  - CARDIO-RESPIRATORY ARREST [None]
  - HEART RATE INCREASED [None]
  - MULTIPLE DRUG OVERDOSE INTENTIONAL [None]
  - REFUSAL OF TREATMENT BY PATIENT [None]
